FAERS Safety Report 21292212 (Version 1)
Quarter: 2022Q3

REPORT INFORMATION
  Report Type: Spontaneous
  Country: US (occurrence: US)
  Receive Date: 20220905
  Receipt Date: 20220905
  Transmission Date: 20221027
  Serious: Yes (Other)
  Sender: FDA-Public Use
  Company Number: US-CELGENE-USA-20211105587

PATIENT
  Age: 23 Year
  Sex: Female

DRUGS (1)
  1. REVLIMID [Suspect]
     Active Substance: LENALIDOMIDE
     Indication: Hodgkin^s disease nodular sclerosis
     Dosage: 20 MILLIGRAM
     Route: 048
     Dates: start: 20210803, end: 20211030

REACTIONS (2)
  - Maternal exposure during pregnancy [Unknown]
  - Intentional product use issue [Unknown]

NARRATIVE: CASE EVENT DATE: 20210101
